FAERS Safety Report 24733843 (Version 2)
Quarter: 2025Q2

REPORT INFORMATION
  Report Type: Spontaneous
  Country: US (occurrence: US)
  Receive Date: 20241214
  Receipt Date: 20250604
  Transmission Date: 20250716
  Serious: No
  Sender: SANOFI AVENTIS
  Company Number: US-SA-2024SA368549

PATIENT
  Age: 74 Year
  Sex: Male
  Weight: 116.55 kg

DRUGS (14)
  1. KEVZARA [Suspect]
     Active Substance: SARILUMAB
     Indication: Polymyalgia rheumatica
     Dosage: 200 MG, QOW
     Route: 058
     Dates: start: 20241125
  2. LISINOPRIL [Concomitant]
     Active Substance: LISINOPRIL
  3. ALBUTEROL SULFATE [Concomitant]
     Active Substance: ALBUTEROL SULFATE
  4. TOPIRAMATE [Concomitant]
     Active Substance: TOPIRAMATE
  5. UBRELVY [Concomitant]
     Active Substance: UBROGEPANT
  6. METOPROLOL SUCCINATE [Concomitant]
     Active Substance: METOPROLOL SUCCINATE
  7. ADVAIR HFA [Concomitant]
     Active Substance: FLUTICASONE PROPIONATE\SALMETEROL XINAFOATE
  8. ALLOPURINOL [Concomitant]
     Active Substance: ALLOPURINOL
  9. PREDNISOLONE [Concomitant]
     Active Substance: PREDNISOLONE
  10. VITAMINS [Concomitant]
     Active Substance: VITAMINS
  11. ATORVASTATIN CALCIUM [Concomitant]
     Active Substance: ATORVASTATIN CALCIUM
  12. ASPIRIN [Concomitant]
     Active Substance: ASPIRIN
  13. OMEPRAZOLE [Concomitant]
     Active Substance: OMEPRAZOLE
  14. NITROGLYCERIN [Concomitant]
     Active Substance: NITROGLYCERIN

REACTIONS (3)
  - Insomnia [Recovered/Resolved]
  - Constipation [Recovered/Resolved]
  - Pain [Unknown]

NARRATIVE: CASE EVENT DATE: 20241125
